FAERS Safety Report 4516736-8 (Version None)
Quarter: 2005Q1

REPORT INFORMATION
  Report Type: 
  Country: None (occurrence: None)
  Receive Date: 20041005
  Receipt Date: 20040708
  Transmission Date: 20050727
  Serious: Yes (Hospitalization)
  Sender: FDA-Public Use
  Company Number: 238039

PATIENT
  Age: 74 Year
  Sex: Male
  Weight: 63 kg

DRUGS (3)
  1. NOVOLOG [Suspect]
     Indication: DIABETES MELLITUS INSULIN-DEPENDENT
     Dosage: 6 IU, TID, SUBCUTANEOUS
     Route: 058
     Dates: start: 20040501
  2. NOVOLIN N [Suspect]
     Indication: DIABETES MELLITUS INSULIN-DEPENDENT
     Dosage: 25 IU, QD, SUBCUTANEOUS
     Route: 058
     Dates: start: 20040501, end: 20040513
  3. LANTUS [Concomitant]

REACTIONS (1)
  - BLOOD GLUCOSE DECREASED [None]
